FAERS Safety Report 5173149-6 (Version None)
Quarter: 2006Q4

REPORT INFORMATION
  Report Type: 
  Country: None (occurrence: None)
  Receive Date: 20061207
  Receipt Date: 20061207
  Transmission Date: 20070319
  Serious: Yes (Hospitalization)
  Sender: FDA-Public Use
  Company Number: None

PATIENT
  Age: 63 Year
  Sex: Female
  Weight: 79 kg

DRUGS (1)
  1. ZETIA [Suspect]
     Indication: HYPERLIPIDAEMIA

REACTIONS (1)
  - PANCREATITIS ACUTE [None]
